FAERS Safety Report 6905412-X (Version None)
Quarter: 2010Q3

REPORT INFORMATION
  Report Type: 
  Country: None (occurrence: None)
  Receive Date: 20100802
  Receipt Date: 20100720
  Transmission Date: 20110219
  Serious: Yes (Hospitalization)
  Sender: FDA-Public Use
  Company Number: 7000032

PATIENT
  Age: 40 Year
  Sex: Female

DRUGS (4)
  1. REBIF [Suspect]
     Indication: MULTIPLE SCLEROSIS
     Dosage: 44 MCG, 3 IN 1 WK, SUBCUTANEOUS; 22 MCG, 3 IN1 WK, SUBCUTANEOUS
     Route: 058
     Dates: start: 20070822, end: 20091101
  2. REBIF [Suspect]
     Indication: MULTIPLE SCLEROSIS
     Dosage: 44 MCG, 3 IN 1 WK, SUBCUTANEOUS; 22 MCG, 3 IN1 WK, SUBCUTANEOUS
     Route: 058
     Dates: start: 20100414, end: 20100501
  3. EFFEXOR [Concomitant]
  4. ZANTAC 150 [Concomitant]

REACTIONS (3)
  - DEVICE RELATED INFECTION [None]
  - INFLAMMATORY BOWEL DISEASE [None]
  - SEPSIS [None]
